FAERS Safety Report 12801418 (Version 1)
Quarter: 2016Q4

REPORT INFORMATION
  Report Type: Spontaneous
  Country: IT (occurrence: IT)
  Receive Date: 20161003
  Receipt Date: 20161003
  Transmission Date: 20170207
  Serious: Yes (Other)
  Sender: FDA-Public Use
  Company Number: IT-ACS-000456

PATIENT
  Age: 75 Day
  Sex: Female

DRUGS (2)
  1. VANCOMYCIN [Concomitant]
     Active Substance: VANCOMYCIN
     Indication: OSTEOMYELITIS
     Route: 042
  2. MEROPENEM. [Suspect]
     Active Substance: MEROPENEM
     Indication: OSTEOMYELITIS
     Route: 042

REACTIONS (4)
  - Blood cholesterol increased [Recovered/Resolved]
  - Off label use [Recovered/Resolved]
  - Hypertriglyceridaemia [Recovered/Resolved]
  - High density lipoprotein decreased [Recovered/Resolved]

NARRATIVE: CASE EVENT DATE: 20151118
